FAERS Safety Report 10803899 (Version 1)
Quarter: 2015Q1

REPORT INFORMATION
  Report Type: Spontaneous
  Country: IT (occurrence: IT)
  Receive Date: 20150217
  Receipt Date: 20150217
  Transmission Date: 20150721
  Serious: Yes (Hospitalization)
  Sender: FDA-Public Use
  Company Number: IT-ACTAVIS-2015-02125

PATIENT
  Age: 67 Year
  Sex: Male
  Weight: 70 kg

DRUGS (1)
  1. OXALIPLATIN (UNKNOWN) [Suspect]
     Active Substance: OXALIPLATIN
     Indication: HETEROPLASIA
     Dosage: 100 MG, CYCLICAL
     Route: 042
     Dates: start: 20150126, end: 20150126

REACTIONS (4)
  - Rash [Recovered/Resolved]
  - Hypotension [Recovered/Resolved]
  - Loss of consciousness [Recovered/Resolved]
  - Muscle contractions involuntary [Recovered/Resolved]

NARRATIVE: CASE EVENT DATE: 20150126
